FAERS Safety Report 8464127-X (Version None)
Quarter: 2012Q2

REPORT INFORMATION
  Report Type: 
  Country: None (occurrence: None)
  Receive Date: 20120625
  Receipt Date: 20120612
  Transmission Date: 20120825
  Serious: Yes (Other)
  Sender: FDA-Public Use
  Company Number: NL-MYLANLABS-2012S1011974

PATIENT
  Age: 8 Decade
  Sex: Female

DRUGS (3)
  1. PREDNISONE [Suspect]
     Indication: ASTHMA
     Dosage: 15MG DAILY FOR AT LEAST 10 YEARS
     Route: 065
  2. NAPROXEN [Suspect]
     Indication: MYOPATHY
     Route: 065
  3. NAPROXEN [Suspect]
     Indication: PAIN
     Route: 065

REACTIONS (4)
  - OSTEOPOROSIS [None]
  - CUSHING'S SYNDROME [None]
  - DIABETES MELLITUS [None]
  - HYPOALDOSTERONISM [None]
